FAERS Safety Report 5517396-X (Version None)
Quarter: 2007Q4

REPORT INFORMATION
  Report Type: 
  Country: None (occurrence: None)
  Receive Date: 20071114
  Receipt Date: 20071109
  Transmission Date: 20080405
  Serious: Yes (Death, Hospitalization)
  Sender: FDA-Public Use
  Company Number: GB-WYE-G00596407

PATIENT
  Sex: Female

DRUGS (1)
  1. SIROLIMUS [Suspect]
     Dosage: UNKNOWN

REACTIONS (3)
  - CHRONIC RESPIRATORY FAILURE [None]
  - CONCOMITANT DISEASE PROGRESSION [None]
  - LOWER RESPIRATORY TRACT INFECTION [None]
